FAERS Safety Report 25199739 (Version 1)
Quarter: 2025Q2

REPORT INFORMATION
  Report Type: Report from Study
  Country: CA (occurrence: CA)
  Receive Date: 20250415
  Receipt Date: 20250415
  Transmission Date: 20250716
  Serious: Yes (Hospitalization)
  Sender: JOHNSON AND JOHNSON
  Company Number: CA-JNJFOC-20250416681

PATIENT
  Sex: Female

DRUGS (3)
  1. REMICADE [Suspect]
     Active Substance: INFLIXIMAB
     Indication: Colitis ulcerative
     Dosage: BATCH NUMBER: 24F066 EXPIRY DATE: MA2027
     Route: 041
  2. REMICADE [Suspect]
     Active Substance: INFLIXIMAB
     Route: 041
     Dates: start: 20120730
  3. Weygovia [Concomitant]

REACTIONS (4)
  - Vertigo [Recovered/Resolved]
  - Headache [Recovered/Resolved]
  - Menopause [Unknown]
  - Off label use [Unknown]
